FAERS Safety Report 16182271 (Version 8)
Quarter: 2024Q1

REPORT INFORMATION
  Report Type: Report from Study
  Country: US (occurrence: US)
  Receive Date: 20190410
  Receipt Date: 20240105
  Transmission Date: 20240410
  Serious: Yes (Other)
  Sender: FDA-Public Use
  Company Number: US-JAZZ-2017-US-008546

PATIENT
  Age: 49 Year
  Sex: Female

DRUGS (47)
  1. XYREM [Suspect]
     Active Substance: SODIUM OXYBATE
     Indication: Narcolepsy
     Dosage: 1.5 G, BID
     Route: 048
     Dates: start: 201506, end: 2015
  2. XYREM [Suspect]
     Active Substance: SODIUM OXYBATE
     Indication: Cataplexy
     Dosage: DOSE ADJUSTMENT
     Route: 048
     Dates: start: 2015, end: 2016
  3. XYREM [Suspect]
     Active Substance: SODIUM OXYBATE
     Dosage: 4.5 G, BID
     Route: 048
     Dates: start: 201602
  4. PROGESTERONE [Suspect]
     Active Substance: PROGESTERONE
     Indication: Product used for unknown indication
     Dosage: UNK
  5. NUVIGIL [Concomitant]
     Active Substance: ARMODAFINIL
     Indication: Product used for unknown indication
  6. CEFUROXIME AXETIL [Concomitant]
     Active Substance: CEFUROXIME AXETIL
     Indication: Product used for unknown indication
  7. ALBUTEROL SULFATE [Concomitant]
     Active Substance: ALBUTEROL SULFATE
     Indication: Product used for unknown indication
  8. BENZONATATE [Concomitant]
     Active Substance: BENZONATATE
     Indication: Product used for unknown indication
     Dosage: UNK
  9. PREDNISONE [Concomitant]
     Active Substance: PREDNISONE
     Indication: Product used for unknown indication
     Dosage: UNK
  10. COLACE [Concomitant]
     Active Substance: DOCUSATE SODIUM
     Indication: Product used for unknown indication
     Dosage: UNK
  11. CYMBALTA [Concomitant]
     Active Substance: DULOXETINE HYDROCHLORIDE
     Indication: Product used for unknown indication
  12. OMEPRAZOLE [Concomitant]
     Active Substance: OMEPRAZOLE
     Indication: Product used for unknown indication
  13. TESTOSTERONE [Concomitant]
     Active Substance: TESTOSTERONE
     Indication: Product used for unknown indication
  14. AMOXICILLIN [Concomitant]
     Active Substance: AMOXICILLIN
     Indication: Product used for unknown indication
  15. TESSALON [Concomitant]
     Active Substance: BENZONATATE
     Indication: Product used for unknown indication
  16. CYTOMEL [Concomitant]
     Active Substance: LIOTHYRONINE SODIUM
     Indication: Product used for unknown indication
  17. GARLIC [Concomitant]
     Active Substance: GARLIC
     Indication: Product used for unknown indication
  18. KLOR-CON [Concomitant]
     Active Substance: POTASSIUM CHLORIDE
     Indication: Product used for unknown indication
  19. VITAMIN B12 [Concomitant]
     Active Substance: CYANOCOBALAMIN
     Indication: Product used for unknown indication
  20. VITAMIN D2 [Concomitant]
     Active Substance: ERGOCALCIFEROL
     Indication: Product used for unknown indication
  21. ALEVE [Concomitant]
     Active Substance: NAPROXEN SODIUM
     Indication: Product used for unknown indication
  22. BIOTIN [Concomitant]
     Active Substance: BIOTIN
     Indication: Product used for unknown indication
  23. FISH OIL [Concomitant]
     Active Substance: FISH OIL
     Indication: Product used for unknown indication
  24. METAXALONE [Concomitant]
     Active Substance: METAXALONE
     Indication: Product used for unknown indication
  25. TOPIRAMATE [Concomitant]
     Active Substance: TOPIRAMATE
     Indication: Product used for unknown indication
  26. XOPENEX [Concomitant]
     Active Substance: LEVALBUTEROL HYDROCHLORIDE
     Indication: Product used for unknown indication
  27. CYCLOBENZAPRINE [Concomitant]
     Active Substance: CYCLOBENZAPRINE
     Indication: Product used for unknown indication
  28. TOBRAMYCIN [Concomitant]
     Active Substance: TOBRAMYCIN
     Indication: Product used for unknown indication
  29. CALCIUM\VITAMIN D [Concomitant]
     Active Substance: CALCIUM\VITAMIN D
     Indication: Product used for unknown indication
  30. DIPHENHYDRAMINE [Concomitant]
     Active Substance: DIPHENHYDRAMINE
     Indication: Product used for unknown indication
  31. ECHINACEA PURPUREA WHOLE [Concomitant]
     Active Substance: ECHINACEA PURPUREA WHOLE
     Indication: Product used for unknown indication
  32. DIETARY SUPPLEMENT [Concomitant]
     Active Substance: DIETARY SUPPLEMENT
     Indication: Product used for unknown indication
  33. LIOTHYRONINE [Concomitant]
     Active Substance: LIOTHYRONINE
     Indication: Product used for unknown indication
  34. SODIUM CHLORIDE [Concomitant]
     Active Substance: SODIUM CHLORIDE
     Indication: Product used for unknown indication
  35. SYNTHROID [Concomitant]
     Active Substance: LEVOTHYROXINE SODIUM
     Indication: Product used for unknown indication
  36. VITAMIN C [Concomitant]
     Active Substance: ASCORBIC ACID
     Indication: Product used for unknown indication
  37. ZETONNA [Concomitant]
     Active Substance: CICLESONIDE
     Indication: Product used for unknown indication
  38. LUNESTA [Concomitant]
     Active Substance: ESZOPICLONE
     Indication: Product used for unknown indication
  39. ARMOUR THYROID [Concomitant]
     Active Substance: THYROID, PORCINE
     Indication: Product used for unknown indication
  40. IMMUNOCAL [Concomitant]
     Indication: Product used for unknown indication
  41. REMERON [Concomitant]
     Active Substance: MIRTAZAPINE
     Indication: Product used for unknown indication
  42. TEMAZEPAM [Concomitant]
     Active Substance: TEMAZEPAM
     Indication: Product used for unknown indication
  43. ZYRTEC [Concomitant]
     Active Substance: CETIRIZINE HYDROCHLORIDE
     Indication: Product used for unknown indication
  44. GABAPENTIN [Concomitant]
     Active Substance: GABAPENTIN
     Indication: Product used for unknown indication
  45. TOPAMAX [Concomitant]
     Active Substance: TOPIRAMATE
     Indication: Product used for unknown indication
  46. VITAMIN D3 [Concomitant]
     Active Substance: CHOLECALCIFEROL
     Indication: Product used for unknown indication
  47. SINGULAIR [Concomitant]
     Active Substance: MONTELUKAST SODIUM
     Indication: Product used for unknown indication
     Dosage: UNK
     Dates: start: 20180801

REACTIONS (9)
  - Asthma [Recovered/Resolved]
  - Weight increased [Unknown]
  - Obstructive sleep apnoea syndrome [Recovering/Resolving]
  - Central sleep apnoea syndrome [Recovering/Resolving]
  - Respiration abnormal [Recovering/Resolving]
  - Blood pressure decreased [Recovered/Resolved]
  - Somnolence [Not Recovered/Not Resolved]
  - Pre-existing condition improved [Unknown]
  - Asthma [Not Recovered/Not Resolved]

NARRATIVE: CASE EVENT DATE: 20190301
